FAERS Safety Report 12666638 (Version 4)
Quarter: 2023Q4

REPORT INFORMATION
  Report Type: Other
  Country: DE (occurrence: None)
  Receive Date: 20160819
  Receipt Date: 20231016
  Transmission Date: 20240110
  Serious: Yes (Death, Other)
  Sender: FDA-Public Use
  Company Number: DE-ROCHE-1814842

PATIENT

DRUGS (4)
  1. CAPECITABINE [Suspect]
     Active Substance: CAPECITABINE
     Indication: Breast cancer
     Dosage: ON DAY 1 -14 EVERY 22 DAY CYCLES FOR 6 CYCLES
     Route: 065
  2. IBANDRONIC ACID [Suspect]
     Active Substance: IBANDRONIC ACID
     Indication: Breast cancer
     Dosage: 6 CYCLES
     Route: 048
  3. IBANDRONIC ACID [Suspect]
     Active Substance: IBANDRONIC ACID
     Indication: Breast cancer
     Dosage: FOR 2 YEARS
     Route: 042
  4. ANASTROZOLE [Concomitant]
     Active Substance: ANASTROZOLE
     Dosage: FOR 5 YEARS
     Route: 048

REACTIONS (40)
  - Death [Fatal]
  - Palmar-plantar erythrodysaesthesia syndrome [Unknown]
  - Anaemia [Unknown]
  - Leukopenia [Unknown]
  - Neutropenia [Unknown]
  - Thrombocytopenia [Unknown]
  - Peripheral sensory neuropathy [Unknown]
  - Dizziness [Unknown]
  - Headache [Unknown]
  - Arrhythmia [Unknown]
  - Myocardial ischaemia [Unknown]
  - Embolism [Unknown]
  - Diarrhoea [Unknown]
  - Vomiting [Unknown]
  - Nausea [Unknown]
  - Stomatitis [Unknown]
  - Nail disorder [Unknown]
  - Rash [Unknown]
  - Hot flush [Unknown]
  - Fatigue [Unknown]
  - Infection [Unknown]
  - Benign neoplasm [Unknown]
  - Neoplasm malignant [Unknown]
  - Immune system disorder [Unknown]
  - Eye disorder [Unknown]
  - Inner ear disorder [Unknown]
  - Ear disorder [Unknown]
  - Respiratory disorder [Unknown]
  - Ill-defined disorder [Unknown]
  - Mediastinal disorder [Unknown]
  - Hepatobiliary disease [Unknown]
  - Musculoskeletal disorder [Unknown]
  - Urinary tract disorder [Unknown]
  - Renal disorder [Unknown]
  - Injury [Unknown]
  - Poisoning [Unknown]
  - Procedural complication [Unknown]
  - Mental disorder [Unknown]
  - Gene mutation [Unknown]
  - Endocrine disorder [Unknown]
